FAERS Safety Report 6346288-1 (Version None)
Quarter: 2009Q3

REPORT INFORMATION
  Report Type: 
  Country: None (occurrence: None)
  Receive Date: 20090909
  Receipt Date: 20090831
  Transmission Date: 20100115
  Serious: Yes (Other)
  Sender: FDA-Public Use
  Company Number: PHHY2009IT37080

PATIENT
  Sex: Male

DRUGS (3)
  1. ZOMETA [Suspect]
     Indication: PROSTATE CANCER
     Dosage: 4 MG, QMO
     Route: 042
     Dates: start: 20030115, end: 20071015
  2. TAXOTERE [Concomitant]
     Dosage: 20 MG, UNK
     Route: 042
  3. CASODEX [Concomitant]

REACTIONS (1)
  - OSTEONECROSIS [None]
